FAERS Safety Report 13030967 (Version 2)
Quarter: 2017Q4

REPORT INFORMATION
  Report Type: Spontaneous
  Country: US (occurrence: US)
  Receive Date: 20161215
  Receipt Date: 20171208
  Transmission Date: 20180320
  Serious: Yes (Other)
  Sender: FDA-Public Use
  Company Number: US-NOVOPROD-518063

PATIENT
  Age: 76 Year
  Sex: Female

DRUGS (1)
  1. NOVOLIN 70/30 [Suspect]
     Active Substance: INSULIN HUMAN
     Indication: TYPE 2 DIABETES MELLITUS
     Dosage: 50 U, BID AT BREAKFAST AND DINNER
     Route: 058
     Dates: start: 2016, end: 2016

REACTIONS (2)
  - Fall [Unknown]
  - Hypoglycaemia [Unknown]

NARRATIVE: CASE EVENT DATE: 2016
